FAERS Safety Report 8568841 (Version 2)
Quarter: 2013Q1

REPORT INFORMATION
  Report Type: Spontaneous
  Country: FR (occurrence: FR)
  Receive Date: 20120518
  Receipt Date: 20130313
  Transmission Date: 20140127
  Serious: Yes (Death, Hospitalization)
  Sender: FDA-Public Use
  Company Number: FR-ELI_LILLY_AND_COMPANY-FR201205001385

PATIENT
  Age: 66 Year
  Sex: Male

DRUGS (3)
  1. ALIMTA [Suspect]
     Indication: LUNG ADENOCARCINOMA
     Dosage: 500 MG/M2, UNK
     Route: 042
     Dates: start: 20120203
  2. CARBOPLATIN [Concomitant]
     Indication: LUNG ADENOCARCINOMA
     Dosage: 620 MG, UNK
     Route: 042
     Dates: start: 20120203
  3. TAXOTERE [Concomitant]
     Dosage: UNK
     Dates: start: 20120322

REACTIONS (3)
  - Multi-organ failure [Fatal]
  - Peripheral ischaemia [Recovered/Resolved]
  - Peripheral ischaemia [Not Recovered/Not Resolved]
